FAERS Safety Report 23573332 (Version 1)
Quarter: 2024Q1

REPORT INFORMATION
  Report Type: Report from Study
  Country: CA (occurrence: CA)
  Receive Date: 20240228
  Receipt Date: 20240228
  Transmission Date: 20240410
  Serious: Yes (Other)
  Sender: FDA-Public Use
  Company Number: CA-ABBVIE-5636843

PATIENT
  Age: 20 Year
  Sex: Male

DRUGS (3)
  1. RINVOQ [Suspect]
     Active Substance: UPADACITINIB
     Indication: Crohn^s disease
     Dosage: LAST ADMIN DATE: 2024
     Route: 048
     Dates: start: 20240119
  2. RINVOQ [Suspect]
     Active Substance: UPADACITINIB
     Indication: Crohn^s disease
     Dosage: FIRST ADMIN DATE: 2024?LAST ADMIN DATE: 2024
     Route: 048
  3. RINVOQ [Suspect]
     Active Substance: UPADACITINIB
     Indication: Crohn^s disease
     Route: 048
     Dates: start: 20231223

REACTIONS (8)
  - Gastrointestinal wall thickening [Unknown]
  - Pyrexia [Not Recovered/Not Resolved]
  - Intestinal obstruction [Unknown]
  - Abdominal pain [Unknown]
  - Terminal ileitis [Unknown]
  - Abscess intestinal [Unknown]
  - Gastrointestinal disorder [Unknown]
  - C-reactive protein abnormal [Recovering/Resolving]

NARRATIVE: CASE EVENT DATE: 20240101
